FAERS Safety Report 8143312-0 (Version None)
Quarter: 2012Q1

REPORT INFORMATION
  Report Type: 
  Country: None (occurrence: None)
  Receive Date: 20120217
  Receipt Date: 20120213
  Transmission Date: 20120608
  Serious: Yes (Disabling)
  Sender: FDA-Public Use
  Company Number: US-PFIZER INC-2012028583

PATIENT
  Sex: Female
  Weight: 58.5 kg

DRUGS (4)
  1. CELECOXIB [Suspect]
     Dosage: UNK
  2. NEURONTIN [Suspect]
     Dosage: 800 MG, 3X/DAY
     Dates: start: 20110101
  3. CELEBREX [Suspect]
     Indication: ARTHRITIS
     Dosage: 200 MG, 1X/DAY
     Route: 048
     Dates: end: 20110101
  4. GABAPENTIN [Suspect]
     Dosage: UNK

REACTIONS (9)
  - NEURALGIA [None]
  - OEDEMA PERIPHERAL [None]
  - PRODUCT SUBSTITUTION ISSUE [None]
  - DRUG INEFFECTIVE [None]
  - IMPAIRED WORK ABILITY [None]
  - PAIN IN EXTREMITY [None]
  - ARTHRALGIA [None]
  - JOINT SWELLING [None]
  - BLOOD CHOLESTEROL INCREASED [None]
